FAERS Safety Report 8189813-0 (Version None)
Quarter: 2012Q1

REPORT INFORMATION
  Report Type: 
  Country: None (occurrence: None)
  Receive Date: 20120307
  Receipt Date: 20110718
  Transmission Date: 20120608
  Serious: Yes (Other)
  Sender: FDA-Public Use
  Company Number: US-GLAXOSMITHKLINE-A0937368A

PATIENT
  Sex: Female

DRUGS (1)
  1. ROPINIROLE [Suspect]
     Indication: RESTLESS LEGS SYNDROME
     Dosage: 3MG FOUR TIMES PER DAY
     Route: 065

REACTIONS (5)
  - AMNESIA [None]
  - OEDEMA PERIPHERAL [None]
  - HALLUCINATION [None]
  - CONFUSIONAL STATE [None]
  - INSOMNIA [None]
